FAERS Safety Report 8971657 (Version 3)
Quarter: 2013Q1

REPORT INFORMATION
  Report Type: Report from Study
  Country: BR (occurrence: BR)
  Receive Date: 20121217
  Receipt Date: 20130307
  Transmission Date: 20140127
  Serious: Yes (Other)
  Sender: FDA-Public Use
  Company Number: BR-ABBOTT-12P-020-0972710-00

PATIENT
  Sex: Female
  Weight: 50 kg

DRUGS (5)
  1. HUMIRA [Suspect]
     Indication: CROHN^S DISEASE
     Route: 058
     Dates: start: 20100901
  2. HUMIRA [Suspect]
     Route: 058
  3. PROGESTERONE [Concomitant]
     Indication: PROPHYLAXIS
     Dosage: VAGINAL OVULE EVERY NIGHT
  4. PROGESTERONE [Concomitant]
     Indication: ABORTION SPONTANEOUS
  5. PURAN T4 [Concomitant]
     Indication: THYROID DISORDER
     Dosage: IN FASTING
     Route: 048
     Dates: start: 2012

REACTIONS (11)
  - Ectopic pregnancy [Unknown]
  - Diarrhoea [Not Recovered/Not Resolved]
  - Asthenia [Not Recovered/Not Resolved]
  - Fatigue [Not Recovered/Not Resolved]
  - Activities of daily living impaired [Not Recovered/Not Resolved]
  - Weight decreased [Unknown]
  - Mucous stools [Unknown]
  - Diarrhoea [Recovering/Resolving]
  - Feeling abnormal [Not Recovered/Not Resolved]
  - Fatigue [Not Recovered/Not Resolved]
  - Abdominal pain [Unknown]
